FAERS Safety Report 13561417 (Version 1)
Quarter: 2017Q2

REPORT INFORMATION
  Report Type: Spontaneous
  Country: US (occurrence: US)
  Receive Date: 20170518
  Receipt Date: 20170518
  Transmission Date: 20170830
  Serious: No
  Sender: FDA-Public Use
  Company Number: US-AUROBINDO-AUR-APL-2016-16118

PATIENT
  Sex: Male

DRUGS (1)
  1. CEFUROXIME AXETIL TABLETS USP 250 MG [Suspect]
     Active Substance: CEFUROXIME AXETIL
     Indication: LYME DISEASE
     Route: 048

REACTIONS (2)
  - Feeding disorder [Recovered/Resolved]
  - Vomiting [Recovered/Resolved]
